FAERS Safety Report 7935040 (Version 2)
Quarter: 2014Q1

REPORT INFORMATION
  Report Type: Spontaneous
  Country: US (occurrence: US)
  Receive Date: 20110509
  Receipt Date: 20140204
  Transmission Date: 20141002
  Serious: Yes (Other)
  Sender: FDA-Public Use
  Company Number: US-JNJFOC-20110500452

PATIENT
  Age: 56 Year
  Sex: Female

DRUGS (11)
  1. DURAGESIC [Suspect]
     Indication: PAIN
     Route: 062
  2. DURAGESIC [Suspect]
     Indication: PAIN
     Route: 062
  3. DURAGESIC [Suspect]
     Indication: PAIN
     Route: 062
  4. DURAGESIC [Suspect]
     Indication: PAIN
     Route: 062
  5. DURAGESIC [Suspect]
     Indication: PAIN
     Route: 062
     Dates: start: 2006
  6. DURAGESIC [Suspect]
     Indication: PAIN
     Route: 062
     Dates: start: 20110425
  7. ALL OTHER THERAPEUTIC PRODUCTS [Suspect]
     Indication: ARTHRITIS
     Route: 048
     Dates: end: 2010
  8. DIOVAN [Concomitant]
     Indication: HYPERTENSION
     Route: 048
     Dates: start: 2006
  9. CELEBREX [Concomitant]
     Indication: ARTHRITIS
     Route: 048
     Dates: start: 2005
  10. CYMBALTA [Concomitant]
     Indication: BIPOLAR DISORDER
     Route: 048
     Dates: start: 1998
  11. NEXIUM [Concomitant]
     Indication: GASTRIC DISORDER
     Route: 048
     Dates: start: 1996

REACTIONS (9)
  - Arthritis [Not Recovered/Not Resolved]
  - Weight decreased [Not Recovered/Not Resolved]
  - Weight increased [Not Recovered/Not Resolved]
  - Lipids increased [Not Recovered/Not Resolved]
  - Product quality issue [Unknown]
  - Wrong technique in drug usage process [Recovered/Resolved]
  - Drug effect decreased [Recovered/Resolved]
  - Abdominal discomfort [Unknown]
  - Product quality issue [Unknown]
